FAERS Safety Report 9228368 (Version 1)
Quarter: 2013Q2

REPORT INFORMATION
  Report Type: Spontaneous
  Country: US (occurrence: US)
  Receive Date: 20130412
  Receipt Date: 20130412
  Transmission Date: 20140414
  Serious: Yes (Hospitalization)
  Sender: FDA-Public Use
  Company Number: US-GLAXOSMITHKLINE-A0835819A

PATIENT
  Age: 65 Year
  Sex: Male

DRUGS (1)
  1. AVANDIA [Suspect]
     Indication: DIABETES MELLITUS
     Dosage: 4MG UNKNOWN
     Route: 048

REACTIONS (3)
  - Cardiac failure congestive [Not Recovered/Not Resolved]
  - Atrial fibrillation [Unknown]
  - Cardiovascular disorder [Unknown]
